FAERS Safety Report 17571543 (Version 1)
Quarter: 2020Q1

REPORT INFORMATION
  Report Type: Spontaneous
  Country: FR (occurrence: FR)
  Receive Date: 20200323
  Receipt Date: 20200323
  Transmission Date: 20200409
  Serious: Yes (Hospitalization)
  Sender: FDA-Public Use
  Company Number: NVSC2020FR076078

PATIENT
  Age: 26 Year
  Sex: Female

DRUGS (4)
  1. ACTISKENAN [Suspect]
     Active Substance: MORPHINE SULFATE
     Indication: INTENTIONAL OVERDOSE
     Route: 048
     Dates: start: 20191123, end: 20191123
  2. GABAPENTIN. [Suspect]
     Active Substance: GABAPENTIN
     Indication: INTENTIONAL OVERDOSE
     Route: 048
     Dates: start: 20191123, end: 20191123
  3. VALIUM [Suspect]
     Active Substance: DIAZEPAM
     Indication: INTENTIONAL OVERDOSE
     Route: 048
     Dates: start: 20191123, end: 20191123
  4. ACUPAN [Suspect]
     Active Substance: NEFOPAM HYDROCHLORIDE
     Indication: INTENTIONAL OVERDOSE
     Route: 048
     Dates: start: 20191123, end: 20191123

REACTIONS (4)
  - Somnolence [Recovered/Resolved]
  - Poisoning deliberate [Recovered/Resolved]
  - Miosis [Recovered/Resolved]
  - Nausea [Recovered/Resolved]

NARRATIVE: CASE EVENT DATE: 20191123
